FAERS Safety Report 6862059-1 (Version None)
Quarter: 2010Q3

REPORT INFORMATION
  Report Type: 
  Country: None (occurrence: None)
  Receive Date: 20100721
  Receipt Date: 20100709
  Transmission Date: 20110219
  Serious: Yes (Life-Threatening, Hospitalization)
  Sender: FDA-Public Use
  Company Number: FR-JNJFOC-20100703174

PATIENT
  Age: 38 Year
  Sex: Male

DRUGS (9)
  1. REMICADE [Suspect]
     Indication: ANKYLOSING SPONDYLITIS
     Route: 042
  2. REMICADE [Suspect]
     Dosage: 400 MG DAY1, DAY 15, DAY 45, THEN EVERY 2 MONTHS
     Route: 042
  3. REMICADE [Suspect]
     Route: 042
  4. SALAZOPYRINE [Concomitant]
     Indication: ANKYLOSING SPONDYLITIS
     Route: 048
  5. SALAZOPYRINE [Concomitant]
     Route: 048
  6. SALAZOPYRINE [Concomitant]
     Route: 048
  7. SALAZOPYRINE [Concomitant]
     Indication: CROHN'S DISEASE
     Route: 048
  8. SALAZOPYRINE [Concomitant]
     Route: 048
  9. SALAZOPYRINE [Concomitant]
     Route: 048

REACTIONS (2)
  - ANKYLOSING SPONDYLITIS [None]
  - MYOCARDIAL INFARCTION [None]
